FAERS Safety Report 23322455 (Version 5)
Quarter: 2025Q2

REPORT INFORMATION
  Report Type: Spontaneous
  Country: JP (occurrence: JP)
  Receive Date: 20231220
  Receipt Date: 20250425
  Transmission Date: 20250716
  Serious: Yes (Hospitalization, Other)
  Sender: BRISTOL-MYERS SQUIBB COMPANY
  Company Number: JP-BRISTOL-MYERS SQUIBB COMPANY-2023-183846

PATIENT
  Age: 67 Year
  Sex: Male

DRUGS (2)
  1. YERVOY [Suspect]
     Active Substance: IPILIMUMAB
     Indication: Oesophageal carcinoma
     Route: 041
  2. OPDIVO [Suspect]
     Active Substance: NIVOLUMAB
     Indication: Oesophageal carcinoma
     Route: 041

REACTIONS (6)
  - Malignant neoplasm progression [Unknown]
  - Device dislocation [Unknown]
  - White blood cell count decreased [Unknown]
  - Anaemia [Unknown]
  - Neutrophil count decreased [Unknown]
  - Immune-mediated adverse reaction [Unknown]
